FAERS Safety Report 11643579 (Version 1)
Quarter: 2015Q4

REPORT INFORMATION
  Report Type: Spontaneous
  Country: US (occurrence: None)
  Receive Date: 20151019
  Receipt Date: 20151019
  Transmission Date: 20160304
  Serious: Yes (Other)
  Sender: FDA-Public Use
  Company Number: None

PATIENT
  Age: 61 Year
  Sex: Female
  Weight: 126.55 kg

DRUGS (29)
  1. FUROSEMIDE. [Concomitant]
     Active Substance: FUROSEMIDE
  2. FERROUS SULFAE E. [Concomitant]
  3. METOPROLOL TARTRATE. [Concomitant]
     Active Substance: METOPROLOL TARTRATE
  4. ALLEGRA [Concomitant]
     Active Substance: FEXOFENADINE HYDROCHLORIDE
  5. VITAMIN D3 [Concomitant]
     Active Substance: CHOLECALCIFEROL
  6. FLUCONAZOLE 150MG [Suspect]
     Active Substance: FLUCONAZOLE
     Indication: FUNGAL INFECTION
     Dosage: ONE PILL
     Route: 048
  7. HUMULIN R U-500 [Concomitant]
     Active Substance: INSULIN HUMAN
  8. BUPROPION HCL [Concomitant]
     Active Substance: BUPROPION HYDROCHLORIDE
  9. CALCIUM [Concomitant]
     Active Substance: CALCIUM
  10. LAMISIL [Concomitant]
     Active Substance: TERBINAFINE HYDROCHLORIDE
  11. CAPSARICIN [Concomitant]
  12. COLON CLEANSE [Concomitant]
  13. AMLODIPINE BESYLATE. [Concomitant]
     Active Substance: AMLODIPINE BESYLATE
  14. ATORVASTATIN [Concomitant]
     Active Substance: ATORVASTATIN
  15. PROVENTIL HFA [Concomitant]
     Active Substance: ALBUTEROL SULFATE
  16. ASMANEX [Concomitant]
     Active Substance: MOMETASONE FUROATE
  17. ULTRAM [Concomitant]
     Active Substance: TRAMADOL HYDROCHLORIDE
  18. PEPCID [Concomitant]
     Active Substance: FAMOTIDINE
  19. TYLENOL [Concomitant]
     Active Substance: ACETAMINOPHEN
  20. INSULIN PUMP [Concomitant]
     Active Substance: INSULIN NOS
  21. UREA. [Concomitant]
     Active Substance: UREA
  22. COZAAR (LOSARTAN) [Concomitant]
  23. LORATADINE. [Concomitant]
     Active Substance: LORATADINE
  24. ZANTREX [Concomitant]
  25. METFORMIN HCL [Concomitant]
     Active Substance: METFORMIN HYDROCHLORIDE
  26. OMEPRAZOLE. [Concomitant]
     Active Substance: OMEPRAZOLE
  27. POTASSIUM CLORIDE [Concomitant]
  28. ASPRIN [Concomitant]
     Active Substance: ASPIRIN
  29. CETIRIZINE ZERTEC [Concomitant]

REACTIONS (1)
  - Adverse drug reaction [None]

NARRATIVE: CASE EVENT DATE: 20150131
